FAERS Safety Report 21558216 (Version 1)
Quarter: 2022Q4

REPORT INFORMATION
  Report Type: Report from Study
  Country: JP (occurrence: JP)
  Receive Date: 20221107
  Receipt Date: 20221107
  Transmission Date: 20230113
  Serious: Yes (Death, Hospitalization)
  Sender: FDA-Public Use
  Company Number: JP-Mitsubishi Tanabe Pharma Korea Co. Ltd.-MTPC2017-0003240

PATIENT
  Age: 71 Year
  Sex: Female

DRUGS (23)
  1. EDARAVONE [Suspect]
     Active Substance: EDARAVONE
     Indication: Amyotrophic lateral sclerosis
     Dosage: 60 MILLIGRAM, QD
     Route: 041
     Dates: start: 20160719, end: 20160726
  2. EDARAVONE [Suspect]
     Active Substance: EDARAVONE
     Dosage: 60 MILLIGRAM, QD
     Route: 041
     Dates: start: 20160815, end: 20160824
  3. EDARAVONE [Suspect]
     Active Substance: EDARAVONE
     Dosage: 60 MILLIGRAM, QD
     Route: 041
     Dates: start: 20160912, end: 20160921
  4. EDARAVONE [Suspect]
     Active Substance: EDARAVONE
     Dosage: 60 MILLIGRAM, QD
     Route: 041
     Dates: start: 20161010, end: 20161019
  5. EDARAVONE [Suspect]
     Active Substance: EDARAVONE
     Dosage: 60 MILLIGRAM, QD
     Route: 041
     Dates: start: 20161110, end: 20161119
  6. EDARAVONE [Suspect]
     Active Substance: EDARAVONE
     Dosage: 60 MILLIGRAM, QD
     Route: 041
     Dates: start: 20161212, end: 20161221
  7. EDARAVONE [Suspect]
     Active Substance: EDARAVONE
     Dosage: 60 MILLIGRAM, QD
     Route: 041
     Dates: start: 20170116, end: 20170125
  8. EDARAVONE [Suspect]
     Active Substance: EDARAVONE
     Dosage: 60 MILLIGRAM, QD
     Route: 041
     Dates: start: 20170213, end: 20170222
  9. EDARAVONE [Suspect]
     Active Substance: EDARAVONE
     Dosage: 60 MILLIGRAM, QD
     Route: 041
     Dates: start: 20170308, end: 20170317
  10. EDARAVONE [Suspect]
     Active Substance: EDARAVONE
     Dosage: 60 MILLIGRAM, QD
     Route: 041
     Dates: start: 20170405, end: 20170414
  11. EDARAVONE [Suspect]
     Active Substance: EDARAVONE
     Dosage: 60 MILLIGRAM, QD
     Route: 041
     Dates: start: 20170510, end: 20170520
  12. EDARAVONE [Suspect]
     Active Substance: EDARAVONE
     Dosage: 60 MILLIGRAM, QD
     Route: 041
     Dates: start: 20170605, end: 20170615
  13. EDARAVONE [Suspect]
     Active Substance: EDARAVONE
     Dosage: 60 MILLIGRAM, QD
     Route: 041
     Dates: start: 20170704, end: 20170715
  14. EDARAVONE [Suspect]
     Active Substance: EDARAVONE
     Dosage: 60 MILLIGRAM, QD
     Route: 041
     Dates: start: 20170801, end: 20170812
  15. EDARAVONE [Suspect]
     Active Substance: EDARAVONE
     Dosage: 60 MILLIGRAM, QD
     Route: 041
     Dates: start: 20190316, end: 20190318
  16. BELSOMRA [Concomitant]
     Active Substance: SUVOREXANT
     Dosage: 15 MILLIGRAM, QD
     Route: 048
     Dates: start: 20160719, end: 20170113
  17. TRAMADOL [Concomitant]
     Active Substance: TRAMADOL
     Dosage: 25 MILLIGRAM, QD
     Route: 048
     Dates: start: 20160719, end: 20160729
  18. CALONAL [Concomitant]
     Active Substance: ACETAMINOPHEN
     Dosage: 1500 MILLIGRAM, QD
     Route: 048
     Dates: start: 20160719, end: 20170113
  19. LOXOPROFEN SODIUM [Concomitant]
     Active Substance: LOXOPROFEN SODIUM
     Dosage: 100 MILLIGRAM, QD
     Route: 061
     Dates: start: 20160719, end: 20160729
  20. RILUZOLE [Concomitant]
     Active Substance: RILUZOLE
     Indication: Amyotrophic lateral sclerosis
     Dosage: 100 MILLIGRAM, QD
     Route: 048
     Dates: start: 20160712
  21. MAGNESIUM OXIDE [Concomitant]
     Active Substance: MAGNESIUM OXIDE
     Indication: Amyotrophic lateral sclerosis
     Dosage: 1000 MILLIGRAM, QD
     Route: 048
     Dates: start: 20170116, end: 20180128
  22. CARBOCYSTEINE [Concomitant]
     Active Substance: CARBOCYSTEINE
     Indication: Amyotrophic lateral sclerosis
     Dosage: 1500 MILLIGRAM, QD
     Route: 048
     Dates: end: 20180609
  23. AMBROXOL HYDROCHLORIDE [Concomitant]
     Active Substance: AMBROXOL HYDROCHLORIDE
     Indication: Amyotrophic lateral sclerosis
     Dosage: 45 MILLIGRAM, QD
     Route: 048
     Dates: end: 20180609

REACTIONS (3)
  - Death [Fatal]
  - Radius fracture [Recovering/Resolving]
  - Cystatin C increased [Recovered/Resolved]

NARRATIVE: CASE EVENT DATE: 20160721
